FAERS Safety Report 9921779 (Version 2)
Quarter: 2014Q2

REPORT INFORMATION
  Report Type: Spontaneous
  Country: JP (occurrence: JP)
  Receive Date: 20140225
  Receipt Date: 20140415
  Transmission Date: 20141212
  Serious: Yes (Hospitalization)
  Sender: FDA-Public Use
  Company Number: JP-009507513-1402JPN011031

PATIENT
  Age: 57 Year
  Sex: Female

DRUGS (4)
  1. JANUVIA TABLETS 50MG [Suspect]
     Dosage: 50 MG, UNK
     Route: 048
     Dates: end: 2014
  2. JANUVIA TABLETS 25MG [Suspect]
     Dosage: 25 MG, UNK
     Route: 048
     Dates: start: 2010
  3. METFORMIN HYDROCHLORIDE [Suspect]
     Dosage: 250 MG, TID
     Route: 048
     Dates: start: 2011, end: 201403
  4. DIOVAN [Concomitant]
     Dosage: 80 MG, QD
     Route: 048

REACTIONS (1)
  - Hypokalaemia [Recovered/Resolved]
